FAERS Safety Report 15151840 (Version 1)
Quarter: 2018Q3

REPORT INFORMATION
  Report Type: Spontaneous
  Country: CN (occurrence: CN)
  Receive Date: 20180717
  Receipt Date: 20180717
  Transmission Date: 20181010
  Serious: Yes (Other)
  Sender: FDA-Public Use
  Company Number: CN-MERCK KGAA-2052185

PATIENT
  Sex: Female

DRUGS (2)
  1. NOVOTHYROX [Suspect]
     Active Substance: LEVOTHYROXINE SODIUM
     Indication: PRODUCT USED FOR UNKNOWN INDICATION
     Route: 048
     Dates: start: 201806, end: 201807
  2. EUTHYROX [Suspect]
     Active Substance: LEVOTHYROXINE SODIUM

REACTIONS (13)
  - Dizziness [Recovered/Resolved]
  - Blindness transient [None]
  - Headache [Recovered/Resolved]
  - Cardiac discomfort [Recovered/Resolved]
  - Flushing [None]
  - Loss of consciousness [None]
  - Chest pain [None]
  - Intentional overdose [None]
  - Suspected counterfeit product [None]
  - Head discomfort [None]
  - Product quality issue [None]
  - Joint swelling [None]
  - Fatigue [Recovered/Resolved]

NARRATIVE: CASE EVENT DATE: 201806
